FAERS Safety Report 14906741 (Version 2)
Quarter: 2018Q4

REPORT INFORMATION
  Report Type: Spontaneous
  Country: US (occurrence: US)
  Receive Date: 20180517
  Receipt Date: 20181019
  Transmission Date: 20190204
  Serious: Yes (Other)
  Sender: FDA-Public Use
  Company Number: US-SANOFI-AVENTIS-2012SA027975

PATIENT
  Age: 83 Year
  Sex: Female

DRUGS (7)
  1. SOLOSTAR [Suspect]
     Active Substance: DEVICE
  2. NOVOLOG [Concomitant]
     Active Substance: INSULIN ASPART
     Dosage: UNK
     Route: 065
  3. LANTUS [Suspect]
     Active Substance: INSULIN GLARGINE
     Indication: TYPE 2 DIABETES MELLITUS
     Dosage: 26 DF, HS
     Route: 058
     Dates: start: 2004
  4. LANTUS [Suspect]
     Active Substance: INSULIN GLARGINE
     Dosage: 30 DF,QD
     Route: 051
  5. LANTUS [Suspect]
     Active Substance: INSULIN GLARGINE
     Dosage: 32 U, QD
     Route: 065
  6. LANTUS [Suspect]
     Active Substance: INSULIN GLARGINE
     Dosage: 32, ONCE DAILY IN THE MORNING
     Route: 065
  7. SOLOSTAR [Suspect]
     Active Substance: DEVICE
     Indication: TYPE 2 DIABETES MELLITUS

REACTIONS (6)
  - Pain in extremity [Unknown]
  - Device issue [Unknown]
  - Drug ineffective [Unknown]
  - Injection site induration [Unknown]
  - Extra dose administered [Unknown]
  - Hyperglycaemia [Unknown]
